FAERS Safety Report 11490018 (Version 1)
Quarter: 2015Q3

REPORT INFORMATION
  Report Type: Spontaneous
  Country: US (occurrence: US)
  Receive Date: 20150910
  Receipt Date: 20150910
  Transmission Date: 20151125
  Serious: No
  Sender: FDA-Public Use
  Company Number: US-TEVA-584957USA

PATIENT

DRUGS (1)
  1. CAPECITABINE. [Suspect]
     Active Substance: CAPECITABINE
     Route: 065
     Dates: start: 20150414, end: 20150605

REACTIONS (4)
  - Drug ineffective [Unknown]
  - Swelling [Unknown]
  - Diarrhoea [Unknown]
  - Pain [Unknown]
